FAERS Safety Report 17366048 (Version 1)
Quarter: 2020Q1

REPORT INFORMATION
  Report Type: Spontaneous
  Country: PL (occurrence: PL)
  Receive Date: 20200204
  Receipt Date: 20200204
  Transmission Date: 20200409
  Serious: Yes (Hospitalization, Other)
  Sender: FDA-Public Use
  Company Number: PL-JNJFOC-20200142482

PATIENT
  Age: 80 Year
  Sex: Male

DRUGS (2)
  1. XARELTO [Suspect]
     Active Substance: RIVAROXABAN
     Indication: PULMONARY EMBOLISM
  2. XARELTO [Suspect]
     Active Substance: RIVAROXABAN
     Indication: DEEP VEIN THROMBOSIS
     Dosage: 20 MG, UNK
     Route: 048
     Dates: start: 201903

REACTIONS (8)
  - Prostate cancer [Unknown]
  - Prostatic disorder [Unknown]
  - Inner ear disorder [Unknown]
  - Epistaxis [Unknown]
  - Pneumonia [Unknown]
  - Renal cyst [Unknown]
  - Balance disorder [Unknown]
  - Off label use [Unknown]
